FAERS Safety Report 10029601 (Version 1)
Quarter: 2014Q1

REPORT INFORMATION
  Report Type: Spontaneous
  Country: US (occurrence: None)
  Receive Date: 20140320
  Receipt Date: 20140320
  Transmission Date: 20141002
  Serious: Yes (Other)
  Sender: FDA-Public Use
  Company Number: None

PATIENT
  Age: 55 Year
  Sex: Male
  Weight: 68 kg

DRUGS (1)
  1. GABAPENTIN [Suspect]
     Indication: NEURALGIA
     Dosage: 300MG (2)  3 TIMES  DAY

REACTIONS (5)
  - Memory impairment [None]
  - Confusional state [None]
  - Depressed mood [None]
  - Suicidal ideation [None]
  - Mood swings [None]
